FAERS Safety Report 16194168 (Version 3)
Quarter: 2025Q4

REPORT INFORMATION
  Report Type: Report from Study
  Country: US (occurrence: US)
  Receive Date: 20190414
  Receipt Date: 20251229
  Transmission Date: 20260117
  Serious: No
  Sender: NOVARTIS
  Company Number: PHEH2019US016014

PATIENT
  Sex: Female

DRUGS (1)
  1. COSENTYX [Suspect]
     Active Substance: SECUKINUMAB
     Indication: Psoriasis
     Dosage: 300 MG, UNK (ROUTE: INJECTION NOS)
     Route: 050
     Dates: start: 20170721

REACTIONS (2)
  - Vulvovaginal candidiasis [Unknown]
  - Sinusitis [Unknown]

NARRATIVE: CASE EVENT DATE: 20181201
